FAERS Safety Report 17519697 (Version 2)
Quarter: 2020Q1

REPORT INFORMATION
  Report Type: Report from Study
  Country: JP (occurrence: JP)
  Receive Date: 20200309
  Receipt Date: 20200311
  Transmission Date: 20200409
  Serious: Yes (Death, Hospitalization)
  Sender: FDA-Public Use
  Company Number: JP-PFIZER INC-2019081409

PATIENT
  Age: 84 Year
  Sex: Female
  Weight: 53 kg

DRUGS (15)
  1. MAGLAX [MAGNESIUM OXIDE] [Concomitant]
     Route: 048
  2. ALLELOCK [Concomitant]
     Active Substance: OLOPATADINE HYDROCHLORIDE
     Route: 048
  3. ASPENON [Concomitant]
     Active Substance: APRINDINE HYDROCHLORIDE
     Route: 048
  4. ATELEC [Concomitant]
     Active Substance: CILNIDIPINE
     Route: 048
  5. EPADEL S [Concomitant]
     Active Substance: ICOSAPENT ETHYL
     Route: 048
  6. FOSRENOL [Concomitant]
     Active Substance: LANTHANUM CARBONATE
     Route: 048
  7. TAKELDA [Concomitant]
     Active Substance: ASPIRIN\LANSOPRAZOLE
     Route: 048
  8. FEBURIC TABLETS [Concomitant]
     Active Substance: FEBUXOSTAT
     Route: 048
  9. XELJANZ [Suspect]
     Active Substance: TOFACITINIB CITRATE
     Indication: RHEUMATOID ARTHRITIS
     Dosage: 5 MG, 1X/DAY
     Route: 048
     Dates: start: 20160825, end: 20170930
  10. CINAL (ASCORBIC ACID\CALCIUM PANTOTHENATE) [Concomitant]
     Active Substance: ASCORBIC ACID\CALCIUM PANTOTHENATE
     Route: 048
  11. GASMOTIN [Concomitant]
     Active Substance: MOSAPRIDE CITRATE
     Route: 048
  12. MERISLON [Concomitant]
     Active Substance: BETAHISTINE MESILATE
     Route: 048
  13. RENAGEL [Concomitant]
     Active Substance: SEVELAMER HYDROCHLORIDE
     Route: 048
  14. PROMAC D [Concomitant]
     Active Substance: POLAPREZINC
     Route: 048
  15. RIONA [Concomitant]
     Active Substance: FERRIC CITRATE ANHYDROUS
     Route: 048

REACTIONS (3)
  - Decreased appetite [Unknown]
  - Chronic kidney disease [Not Recovered/Not Resolved]
  - Pneumonia aspiration [Fatal]

NARRATIVE: CASE EVENT DATE: 20170901
